FAERS Safety Report 5605255-3 (Version None)
Quarter: 2008Q1

REPORT INFORMATION
  Report Type: 
  Country: None (occurrence: None)
  Receive Date: 20080129
  Receipt Date: 20080118
  Transmission Date: 20080703
  Serious: Yes (Other)
  Sender: FDA-Public Use
  Company Number: US-PFIZER INC-2007100546

PATIENT
  Age: 18 Year
  Sex: Female
  Weight: 95.3 kg

DRUGS (7)
  1. CELEBREX [Suspect]
     Indication: BACK DISORDER
  2. CELEBREX [Suspect]
     Indication: ARTHROPATHY
  3. CELEBREX [Suspect]
     Indication: ARTHRALGIA
  4. ZITHROMAX [Suspect]
     Indication: BRONCHITIS
     Dates: start: 20071128, end: 20071201
  5. EFFEXOR [Concomitant]
  6. METFORMIN HCL [Concomitant]
  7. YASMIN [Concomitant]

REACTIONS (9)
  - ABDOMINAL TENDERNESS [None]
  - BACK PAIN [None]
  - BLASTOMYCOSIS [None]
  - DIARRHOEA [None]
  - INCORRECT DOSE ADMINISTERED [None]
  - MUSCULOSKELETAL CHEST PAIN [None]
  - PNEUMONIA [None]
  - VOMITING [None]
  - WEIGHT DECREASED [None]
